FAERS Safety Report 7279174-3 (Version None)
Quarter: 2011Q1

REPORT INFORMATION
  Report Type: 
  Country: None (occurrence: None)
  Receive Date: 20110207
  Receipt Date: 20110128
  Transmission Date: 20110831
  Serious: Yes (Hospitalization)
  Sender: FDA-Public Use
  Company Number: JP-ABBOTT-07P-087-0357198-00

PATIENT
  Sex: Female

DRUGS (14)
  1. DIAZEPAM [Concomitant]
     Indication: PROPHYLAXIS
     Route: 048
     Dates: start: 20070118, end: 20070118
  2. HUSCODE [Concomitant]
     Indication: PROPHYLAXIS
     Dates: start: 20070118, end: 20070118
  3. ATARAX [Concomitant]
     Indication: PROPHYLAXIS
     Route: 050
     Dates: start: 20070118, end: 20070118
  4. ISODINE GARGLE [Concomitant]
     Indication: PROPHYLAXIS
     Route: 048
     Dates: start: 20070123
  5. LEUPRORELIN DEPOT [Suspect]
  6. LEUPRORELIN DEPOT [Suspect]
     Indication: BREAST CANCER
     Route: 058
     Dates: start: 20060726
  7. TAMOXIFEN CITRATE [Suspect]
     Indication: MENOPAUSE
     Route: 048
     Dates: start: 20060726, end: 20070117
  8. TAMOXIFEN CITRATE [Suspect]
     Route: 048
     Dates: start: 20070202
  9. PURSENNID [Concomitant]
     Indication: CONSTIPATION
     Route: 048
     Dates: start: 20070123
  10. ATROPINE SULFATE [Concomitant]
     Indication: PROPHYLAXIS
     Route: 050
     Dates: start: 20070118, end: 20070118
  11. ALFACALCIDOL [Concomitant]
     Indication: PROPHYLAXIS
     Route: 048
     Dates: start: 20070123
  12. HUSTAZOL [Concomitant]
     Indication: PROPHYLAXIS
     Route: 048
     Dates: start: 20070118, end: 20070118
  13. TAKEPRON [Concomitant]
     Indication: PROPHYLAXIS
     Dates: start: 20070123
  14. RISEDRONATE SODIUM [Concomitant]
     Indication: PROPHYLAXIS
     Dates: start: 20070124

REACTIONS (1)
  - ORGANISING PNEUMONIA [None]
